FAERS Safety Report 9496184 (Version 2)
Quarter: 2013Q3

REPORT INFORMATION
  Report Type: Spontaneous
  Country: FR (occurrence: FR)
  Receive Date: 20130904
  Receipt Date: 20130904
  Transmission Date: 20140515
  Serious: Yes (Other)
  Sender: FDA-Public Use
  Company Number: FR-BRISTOL-MYERS SQUIBB COMPANY-18963165

PATIENT
  Age: 47 Year
  Sex: Female

DRUGS (6)
  1. ABILIFY [Suspect]
     Indication: SCHIZOPHRENIA
     Dosage: INTIALLY 5 MG THEN 20 MG
     Dates: start: 201301
  2. RISPERDAL [Concomitant]
     Indication: SCHIZOPHRENIA
     Route: 048
     Dates: start: 201009
  3. EFFEXOR [Concomitant]
     Indication: DEPRESSION
     Route: 048
     Dates: start: 2011
  4. TEMESTA [Concomitant]
     Indication: ANXIETY
     Route: 048
     Dates: start: 201009
  5. ATARAX [Concomitant]
     Indication: ANXIETY
     Route: 048
     Dates: start: 2011
  6. LEPTICUR [Concomitant]
     Route: 048
     Dates: start: 2007

REACTIONS (4)
  - Breast cancer [Unknown]
  - Tremor [Unknown]
  - Hiccups [Recovered/Resolved]
  - Gastrooesophageal reflux disease [Not Recovered/Not Resolved]
